FAERS Safety Report 5748009-X (Version None)
Quarter: 2008Q2

REPORT INFORMATION
  Report Type: 
  Country: None (occurrence: None)
  Receive Date: 20080523
  Receipt Date: 20080516
  Transmission Date: 20081010
  Serious: Yes (Hospitalization)
  Sender: FDA-Public Use
  Company Number: BE-AMGEN-UK272472

PATIENT
  Sex: Male
  Weight: 55.5 kg

DRUGS (12)
  1. KEPIVANCE [Suspect]
     Indication: MUCOSAL INFLAMMATION
     Route: 042
     Dates: start: 20080229
  2. MELPHALAN [Suspect]
     Route: 042
     Dates: start: 20080303, end: 20080303
  3. ACYCLOVIR SODIUM [Concomitant]
     Route: 042
     Dates: start: 20080229, end: 20080403
  4. FLUCONAZOLE [Concomitant]
     Route: 048
     Dates: start: 20080229, end: 20080403
  5. CIPROFLOXACIN HCL [Concomitant]
     Route: 048
     Dates: start: 20080229, end: 20080307
  6. FILGRASTIM [Concomitant]
     Route: 058
     Dates: start: 20080306, end: 20080316
  7. CEFEPIME [Concomitant]
     Route: 042
     Dates: start: 20080307, end: 20080313
  8. VANCOMYCIN [Concomitant]
     Route: 042
     Dates: start: 20080307, end: 20080325
  9. TRAMADOL HCL [Concomitant]
     Route: 042
     Dates: start: 20080311, end: 20080315
  10. MORPHINE [Concomitant]
     Route: 042
     Dates: start: 20080312, end: 20080327
  11. MEROPENEM [Concomitant]
     Route: 042
     Dates: start: 20080313, end: 20080326
  12. METRONIDAZOLE HCL [Concomitant]
     Route: 048
     Dates: start: 20080325, end: 20080331

REACTIONS (2)
  - ANOREXIA [None]
  - FATIGUE [None]
